FAERS Safety Report 14235939 (Version 3)
Quarter: 2018Q1

REPORT INFORMATION
  Report Type: Report from Study
  Country: None (occurrence: AR)
  Receive Date: 20171129
  Receipt Date: 20180123
  Transmission Date: 20180508
  Serious: Yes (Death, Hospitalization, Other)
  Sender: FDA-Public Use
  Company Number: AR-ABBVIE-17K-007-2177346-00

PATIENT
  Age: 51 Year
  Sex: Female

DRUGS (1)
  1. HUMIRA [Suspect]
     Active Substance: ADALIMUMAB
     Indication: PSORIATIC ARTHROPATHY
     Route: 058
     Dates: start: 20170927

REACTIONS (4)
  - Loss of consciousness [Not Recovered/Not Resolved]
  - Infarction [Fatal]
  - Fall [Fatal]
  - Injury [Unknown]

NARRATIVE: CASE EVENT DATE: 20171120
